FAERS Safety Report 23277601 (Version 1)
Quarter: 2023Q4

REPORT INFORMATION
  Report Type: Spontaneous
  Country: US (occurrence: None)
  Receive Date: 20231207
  Receipt Date: 20231207
  Transmission Date: 20240110
  Serious: No
  Sender: FDA-Public Use
  Company Number: None

PATIENT
  Age: 39 Year
  Sex: Female
  Weight: 74.25 kg

DRUGS (1)
  1. CLARISCAN [Suspect]
     Active Substance: GADOTERATE MEGLUMINE
     Indication: Magnetic resonance imaging
     Dates: start: 20231202, end: 20231202

REACTIONS (6)
  - Pruritus [None]
  - Sunburn [None]
  - Skin burning sensation [None]
  - Paraesthesia [None]
  - Paraesthesia [None]
  - Contrast media reaction [None]

NARRATIVE: CASE EVENT DATE: 20231203
